FAERS Safety Report 4841978-1 (Version None)
Quarter: 2005Q4

REPORT INFORMATION
  Report Type: 
  Country: None (occurrence: None)
  Receive Date: 20051130
  Receipt Date: 20051019
  Transmission Date: 20060501
  Serious: No
  Sender: FDA-Public Use
  Company Number: US-GLAXOSMITHKLINE-A0578770A

PATIENT
  Age: 47 Year
  Sex: Female

DRUGS (2)
  1. WELLBUTRIN XL [Suspect]
     Indication: DEPRESSION
     Dosage: 300MG PER DAY
     Route: 048
     Dates: start: 20051007
  2. NO CONCURRENT MEDICATION [Concomitant]

REACTIONS (8)
  - AGITATION [None]
  - DIZZINESS [None]
  - HYPERHIDROSIS [None]
  - PARAESTHESIA [None]
  - POOR QUALITY DRUG ADMINISTERED [None]
  - PRURITUS [None]
  - RASH [None]
  - WRONG TECHNIQUE IN DRUG USAGE PROCESS [None]
